FAERS Safety Report 6188124-2 (Version None)
Quarter: 2009Q2

REPORT INFORMATION
  Report Type: 
  Country: None (occurrence: None)
  Receive Date: 20090513
  Receipt Date: 20090505
  Transmission Date: 20091009
  Serious: Yes (Disabling)
  Sender: FDA-Public Use
  Company Number: FR-ASTRAZENECA-2009CG00866

PATIENT
  Age: 774 Month
  Sex: Male

DRUGS (1)
  1. CRESTOR [Suspect]
     Indication: DYSLIPIDAEMIA
     Route: 048
     Dates: start: 20080721, end: 20090213

REACTIONS (3)
  - MOBILITY DECREASED [None]
  - MYOSITIS [None]
  - ROTATOR CUFF SYNDROME [None]
